FAERS Safety Report 12242903 (Version 4)
Quarter: 2016Q2

REPORT INFORMATION
  Report Type: Report from Study
  Country: AT (occurrence: AT)
  Receive Date: 20160406
  Receipt Date: 20160617
  Transmission Date: 20160815
  Serious: Yes (Death, Life-Threatening, Hospitalization, Other)
  Sender: FDA-Public Use
  Company Number: AT-AMGEN-AUTSL2016039326

PATIENT
  Age: 69 Year
  Sex: Male
  Weight: 106.5 kg

DRUGS (6)
  1. PROLIA [Suspect]
     Active Substance: DENOSUMAB
     Indication: PROSTATE CANCER
  2. PROLIA [Suspect]
     Active Substance: DENOSUMAB
     Indication: OSTEOPOROSIS
     Dosage: 60 MG, Q6MO
     Route: 058
     Dates: start: 20130331, end: 20160404
  3. SEVELAMER [Concomitant]
     Active Substance: SEVELAMER
     Dosage: 800 MG, THREE TABS TWICE
  4. CALCITRIOL. [Concomitant]
     Active Substance: CALCITRIOL
     Dosage: 0.5 MUG, QD
  5. CALCIUM CARBONATE. [Concomitant]
     Active Substance: CALCIUM CARBONATE
     Dosage: 1.5 G, TID
  6. VITAMIN D [Concomitant]
     Active Substance: CHOLECALCIFEROL
     Dosage: 400 IU, QD

REACTIONS (7)
  - Vertigo [Unknown]
  - Ill-defined disorder [Unknown]
  - Acute kidney injury [Fatal]
  - Hyperparathyroidism [Unknown]
  - Hypocalcaemia [Not Recovered/Not Resolved]
  - Somnolence [Unknown]
  - Calciphylaxis [Fatal]

NARRATIVE: CASE EVENT DATE: 20130404
